FAERS Safety Report 15206961 (Version 1)
Quarter: 2018Q3

REPORT INFORMATION
  Report Type: Spontaneous
  Country: US (occurrence: US)
  Receive Date: 20180727
  Receipt Date: 20180727
  Transmission Date: 20181010
  Serious: Yes (Death, Hospitalization, Other)
  Sender: FDA-Public Use
  Company Number: US-ALVOGEN-2018-ALVOGEN-096876

PATIENT
  Age: 24 Year
  Sex: Male

DRUGS (3)
  1. TIANEPTINE [Interacting]
     Active Substance: TIANEPTINE
     Indication: INTENTIONAL PRODUCT MISUSE
  2. METHYLPHENIDATE HYDROCHLORIDE. [Suspect]
     Active Substance: METHYLPHENIDATE HYDROCHLORIDE
     Indication: ATTENTION DEFICIT/HYPERACTIVITY DISORDER
  3. PHENIBUT [Interacting]
     Active Substance: DIETARY SUPPLEMENT
     Indication: INTENTIONAL PRODUCT MISUSE

REACTIONS (3)
  - Substance abuse [Unknown]
  - Toxic leukoencephalopathy [Fatal]
  - Drug interaction [Fatal]
